FAERS Safety Report 13518573 (Version 3)
Quarter: 2017Q2

REPORT INFORMATION
  Report Type: Spontaneous
  Country: US (occurrence: US)
  Receive Date: 20170505
  Receipt Date: 20170622
  Transmission Date: 20170830
  Serious: Yes (Other)
  Sender: FDA-Public Use
  Company Number: US-PFIZER INC-2017191024

PATIENT
  Age: 86 Year
  Sex: Female

DRUGS (14)
  1. XALKORI [Suspect]
     Active Substance: CRIZOTINIB
     Indication: LUNG NEOPLASM MALIGNANT
     Dosage: 250 MG, DAILY
  2. XALKORI [Suspect]
     Active Substance: CRIZOTINIB
     Dosage: 500 MG, DAILY
     Dates: start: 20170420
  3. XALKORI [Suspect]
     Active Substance: CRIZOTINIB
     Dosage: UNK
  4. BACTROBAN [Concomitant]
     Active Substance: MUPIROCIN\MUPIROCIN CALCIUM
     Dosage: 2 %, SEVERAL TIMES A DAY
  5. ZYRTEC [Concomitant]
     Active Substance: CETIRIZINE HYDROCHLORIDE
     Dosage: 10 MG, DAILY
  6. OMEPRAZOLE. [Concomitant]
     Active Substance: OMEPRAZOLE
     Indication: GASTROOESOPHAGEAL REFLUX DISEASE
     Dosage: 20 MG, 1X/DAY
     Route: 048
  7. RIFAMPIN. [Concomitant]
     Active Substance: RIFAMPIN
     Dosage: 300 MG, 1X/DAY
     Route: 048
  8. ALLERGEN [Concomitant]
     Active Substance: UNSPECIFIED INGREDIENT
     Dosage: 18 MG, DAILY
  9. OXYCODONE HYDROCHLORIDE. [Concomitant]
     Active Substance: OXYCODONE HYDROCHLORIDE
     Indication: PAIN IN EXTREMITY
     Dosage: 5 MG, AS NEEDED (1-2 TAB EVERY 4 HR AS NEEDED. )
     Dates: start: 201702
  10. LEVOTHYROXINE. [Concomitant]
     Active Substance: LEVOTHYROXINE
     Indication: HYPOTHYROIDISM
     Dosage: 75 UG, DAILY (7-10 YRS AGO)
  11. XALKORI [Suspect]
     Active Substance: CRIZOTINIB
     Dosage: 250 MG, UNK
  12. GENTAMICIN. [Concomitant]
     Active Substance: GENTAMICIN
     Indication: ERYTHEMA
     Dosage: UNK
     Route: 061
  13. LACTOBACILLUS [Concomitant]
     Active Substance: LACTOBACILLUS ACIDOPHILUS
     Dosage: UNK UNK, 1X/DAY
     Route: 048
  14. NYSTATIN. [Concomitant]
     Active Substance: NYSTATIN
     Indication: GROIN INFECTION
     Dosage: UNK UNK, 4X/DAY
     Route: 061

REACTIONS (6)
  - Streptococcal infection [Recovering/Resolving]
  - Blood pressure abnormal [Recovered/Resolved]
  - Nausea [Unknown]
  - Staphylococcal infection [Recovering/Resolving]
  - Heart rate decreased [Recovered/Resolved]
  - Dermatitis diaper [Recovering/Resolving]
